FAERS Safety Report 21012880 (Version 4)
Quarter: 2022Q3

REPORT INFORMATION
  Report Type: Spontaneous
  Country: US (occurrence: US)
  Receive Date: 20220627
  Receipt Date: 20220923
  Transmission Date: 20221027
  Serious: No
  Sender: FDA-Public Use
  Company Number: US-SA-SAC20220616001162

PATIENT
  Age: 34 Year
  Sex: Male

DRUGS (2)
  1. DUPIXENT [Suspect]
     Active Substance: DUPILUMAB
     Indication: Nasal polyps
     Dosage: 300 MG, FREQUENCY:OTHER
     Route: 058
  2. DUPIXENT [Suspect]
     Active Substance: DUPILUMAB
     Dosage: 400 MG, QOW
     Route: 058

REACTIONS (11)
  - Nasal discomfort [Unknown]
  - Nasal dryness [Unknown]
  - Nasal congestion [Unknown]
  - Rhinorrhoea [Unknown]
  - Rhinalgia [Unknown]
  - Dyspnoea [Unknown]
  - Headache [Unknown]
  - Vertigo positional [Unknown]
  - Dizziness [Unknown]
  - Vertigo [Unknown]
  - Upper respiratory tract infection [Recovered/Resolved]

NARRATIVE: CASE EVENT DATE: 20220314
